FAERS Safety Report 7072268-7 (Version None)
Quarter: 2010Q4

REPORT INFORMATION
  Report Type: 
  Country: None (occurrence: None)
  Receive Date: 20101029
  Receipt Date: 20101019
  Transmission Date: 20110411
  Serious: Yes (Other)
  Sender: FDA-Public Use
  Company Number: DE-ACTELION-A-CH2010-40778

PATIENT
  Sex: Male

DRUGS (5)
  1. TRACLEER [Suspect]
     Indication: PULMONARY HYPERTENSION
     Dosage: 125 MG, BID
     Route: 048
     Dates: start: 20080101
  2. DIURETICS [Concomitant]
  3. MAGNESIUM [Concomitant]
  4. SILDENAFIL CITRATE [Concomitant]
  5. CLOPIDOGREL [Concomitant]

REACTIONS (1)
  - SKIN ULCER [None]
